FAERS Safety Report 10178406 (Version 1)
Quarter: 2014Q2

REPORT INFORMATION
  Report Type: Spontaneous
  Country: US (occurrence: US)
  Receive Date: 20140519
  Receipt Date: 20140519
  Transmission Date: 20141212
  Serious: No
  Sender: FDA-Public Use
  Company Number: US-DRREDDYS-USA/USA/13/0036267

PATIENT
  Sex: Female

DRUGS (2)
  1. RANITIDINE TABLETS 75 MG (RANITIDINE HYDROCHLORIDE) [Suspect]
     Indication: DYSPEPSIA
     Route: 048
     Dates: start: 2013
  2. RANITIDINE TABLETS 75 MG (RANITIDINE HYDROCHLORIDE) [Suspect]
     Route: 048
     Dates: start: 20131210

REACTIONS (1)
  - Faeces discoloured [Recovered/Resolved]
